FAERS Safety Report 12925908 (Version 1)
Quarter: 2016Q4

REPORT INFORMATION
  Report Type: Spontaneous
  Country: US (occurrence: US)
  Receive Date: 20161108
  Receipt Date: 20161108
  Transmission Date: 20170207
  Serious: No
  Sender: FDA-Public Use
  Company Number: US-SA-2016SA176097

PATIENT
  Age: 75 Year
  Sex: Female

DRUGS (2)
  1. ALIROCUMAB PREFILLED PEN [Concomitant]
     Active Substance: ALIROCUMAB
     Indication: HYPERCHOLESTEROLAEMIA
     Route: 065
     Dates: start: 20160804, end: 201609
  2. PRALUENT [Suspect]
     Active Substance: ALIROCUMAB
     Indication: HYPERCHOLESTEROLAEMIA
     Route: 065
     Dates: start: 20160804, end: 201609

REACTIONS (7)
  - Thirst [Unknown]
  - Condition aggravated [Unknown]
  - Arthralgia [Unknown]
  - Pruritus [Recovering/Resolving]
  - Alopecia [Unknown]
  - Cough [Unknown]
  - Myalgia [Unknown]

NARRATIVE: CASE EVENT DATE: 2016
